FAERS Safety Report 4766449-2 (Version None)
Quarter: 2005Q3

REPORT INFORMATION
  Report Type: 
  Country: None (occurrence: None)
  Receive Date: 20050912
  Receipt Date: 20050531
  Transmission Date: 20060218
  Serious: Yes (Hospitalization)
  Sender: FDA-Public Use
  Company Number: DE-ROCHE-406344

PATIENT
  Age: 61 Year
  Sex: Male

DRUGS (26)
  1. DACLIZUMAB [Suspect]
     Route: 042
     Dates: start: 20050209, end: 20050209
  2. DACLIZUMAB [Suspect]
     Route: 042
     Dates: start: 20050216, end: 20050216
  3. MYCOPHENOLATE MOFETIL [Suspect]
     Route: 042
     Dates: start: 20050209, end: 20050214
  4. MYCOPHENOLATE MOFETIL [Suspect]
     Route: 048
     Dates: start: 20050214, end: 20050404
  5. TACROLIMUS [Suspect]
     Dosage: ADJUSTMENT TO REACH PREDEFINED TARGET LEVELS.
     Route: 048
     Dates: start: 20050214
  6. PREDNISOLONE [Suspect]
     Dosage: TAPER ACCORDING TO PROTOCOL.
     Route: 065
     Dates: start: 20050209, end: 20050224
  7. PREDNISOLONE [Suspect]
     Dosage: TAPER ACCORDING TO LOCAL PROTOCOL TAPER.
     Route: 065
     Dates: start: 20050304, end: 20050530
  8. METHYLPREDNISOLONE [Suspect]
     Dosage: TREATMENT OF REJECTION.
     Route: 065
     Dates: start: 20050228, end: 20050302
  9. NITROPROL [Concomitant]
     Indication: BLOOD PRESSURE
     Dates: start: 20050209, end: 20050212
  10. FRAGMIN P [Concomitant]
     Route: 058
     Dates: start: 20050209, end: 20050225
  11. DISOPRIVAN [Concomitant]
     Indication: ANAESTHESIA
     Dates: start: 20050209, end: 20050209
  12. SUFENTANIL CITRATE [Concomitant]
     Indication: ANAESTHESIA
     Dosage: DRUG NAME REPORTED AS: ^SUFENTANYL^.
     Dates: start: 20050209, end: 20050209
  13. ACETYLCYSTEINE [Concomitant]
     Dates: start: 20050209, end: 20050224
  14. OMEPRAZOLE [Concomitant]
     Indication: GASTRIC ULCER
     Dates: start: 20050209
  15. CLAFORAN [Concomitant]
     Dates: start: 20050209, end: 20050212
  16. CLONT [Concomitant]
     Dates: start: 20050209, end: 20050212
  17. CORVATON [Concomitant]
     Indication: BLOOD PRESSURE
     Dates: start: 20050212
  18. DELIX [Concomitant]
     Indication: BLOOD PRESSURE
     Dates: start: 20050212, end: 20050404
  19. CALCIUM GLUCONATE [Concomitant]
     Dates: start: 20050214, end: 20050225
  20. NOVALGIN [Concomitant]
     Indication: PAIN
     Dates: start: 20050216, end: 20050227
  21. ACTRAPHANE [Concomitant]
     Dates: start: 20050209
  22. URSO FALK [Concomitant]
     Dates: start: 20050217
  23. CIPROFLOXACIN [Concomitant]
     Indication: PROPHYLAXIS
     Dates: start: 20050228
  24. EPOGEN [Concomitant]
     Dates: start: 20050526
  25. COMBACTAM [Concomitant]
     Indication: INFECTION PROPHYLAXIS
     Dates: start: 20050503, end: 20050507
  26. BAYPEN [Concomitant]
     Indication: INFECTION PROPHYLAXIS
     Dates: start: 20050503, end: 20050507

REACTIONS (4)
  - BACTERAEMIA [None]
  - BILE DUCT STENOSIS [None]
  - CYTOMEGALOVIRUS INFECTION [None]
  - MEDICAL DEVICE COMPLICATION [None]
